FAERS Safety Report 24952993 (Version 2)
Quarter: 2025Q1

REPORT INFORMATION
  Report Type: Report from Study
  Country: GB (occurrence: GB)
  Receive Date: 20250211
  Receipt Date: 20250219
  Transmission Date: 20250409
  Serious: No
  Sender: ABBVIE
  Company Number: GB-ABBVIE-6120605

PATIENT
  Sex: Female

DRUGS (2)
  1. HUMIRA [Suspect]
     Active Substance: ADALIMUMAB
     Indication: Rheumatoid arthritis
     Route: 058
     Dates: end: 202411
  2. YUFLYMA [Suspect]
     Active Substance: ADALIMUMAB-AATY
     Indication: Product used for unknown indication
     Route: 058

REACTIONS (2)
  - Oral herpes [Unknown]
  - Feeling abnormal [Unknown]
